FAERS Safety Report 4505421-4 (Version None)
Quarter: 2004Q4

REPORT INFORMATION
  Report Type: 
  Country: None (occurrence: None)
  Receive Date: 20041116
  Receipt Date: 20041105
  Transmission Date: 20050328
  Serious: Yes (Death, Hospitalization)
  Sender: FDA-Public Use
  Company Number: STA-AE-04-MTX-546

PATIENT
  Age: 77 Year
  Sex: Female

DRUGS (13)
  1. METHOTREXATE [Suspect]
     Indication: RHEUMATOID ARTHRITIS
     Dosage: 20 MG 1X PER 1 WK, ORAL
     Route: 048
     Dates: start: 20040624, end: 20041023
  2. METHOTREXATE [Suspect]
  3. ENBREL [Suspect]
     Indication: RHEUMATOID ARTHRITIS
     Dosage: 25 MG 2X PER 1 WK, SC
     Route: 058
     Dates: start: 20040624, end: 20041023
  4. ENBREL [Suspect]
  5. ENBREL [Suspect]
  6. ENBREL [Suspect]
  7. ENBREL [Suspect]
  8. ENBREL [Suspect]
  9. ENBREL [Suspect]
  10. OMEPRAZOLE [Concomitant]
  11. THROMBOCID (PENTOSAN POLYSULFATE SODIUM) [Concomitant]
  12. PARACETAMOL (PARACETAMOL) [Concomitant]
  13. FOLIC ACID [Concomitant]

REACTIONS (2)
  - DRUG INTERACTION [None]
  - INTERSTITIAL LUNG DISEASE [None]
